FAERS Safety Report 6663805-2 (Version None)
Quarter: 2010Q2

REPORT INFORMATION
  Report Type: 
  Country: None (occurrence: None)
  Receive Date: 20100401
  Receipt Date: 20100319
  Transmission Date: 20101027
  Serious: No
  Sender: FDA-Public Use
  Company Number: US-B.I. PHARMACEUTICALS,INC./RIDGEFIELD-2010-BP-01009BP

PATIENT
  Sex: Male
  Weight: 92.99 kg

DRUGS (11)
  1. SPIRIVA [Suspect]
     Indication: CHRONIC OBSTRUCTIVE PULMONARY DISEASE
     Dosage: 18 MCG
     Route: 055
     Dates: start: 20091001
  2. SPIRIVA [Suspect]
     Indication: DYSPNOEA
  3. BENAZEPRIL HYDROCHLORIDE [Concomitant]
     Dosage: 40 MG
  4. MIRTAZAPINE [Concomitant]
     Dosage: 60 MG
  5. SIMVASTATIN [Concomitant]
     Dosage: 60 MG
  6. DILTAZEN HCL [Concomitant]
     Dosage: 90 MG
  7. VITAMIN D [Concomitant]
     Dosage: 1000 U
  8. VITAMIN C [Concomitant]
     Dosage: 250 MG
  9. LOVAZA [Concomitant]
     Dosage: 1000 MG
  10. WARFARIN SODIUM [Concomitant]
     Dosage: 4 MG
  11. METAMUCIL-2 [Concomitant]

REACTIONS (3)
  - DRUG INEFFECTIVE [None]
  - DYSPNOEA [None]
  - DYSPNOEA EXERTIONAL [None]
